FAERS Safety Report 16130149 (Version 1)
Quarter: 2019Q1

REPORT INFORMATION
  Report Type: Spontaneous
  Country: GB (occurrence: GB)
  Receive Date: 20190328
  Receipt Date: 20190328
  Transmission Date: 20190418
  Serious: Yes (Other)
  Sender: FDA-Public Use
  Company Number: GB-ASTRAZENECA-2019SE44727

PATIENT
  Sex: Female

DRUGS (1)
  1. DUORESP SPIROMAX [Suspect]
     Active Substance: BUDESONIDE\FORMOTEROL
     Indication: PRODUCT USED FOR UNKNOWN INDICATION
     Dosage: 4 DOSAGE FORMS DAILY
     Route: 055
     Dates: start: 20190225

REACTIONS (10)
  - Dyspnoea [Unknown]
  - Emotional distress [Unknown]
  - Throat tightness [Unknown]
  - Dysgeusia [Unknown]
  - Glossodynia [Unknown]
  - Feeling abnormal [Unknown]
  - Swollen tongue [Unknown]
  - Paraesthesia oral [Unknown]
  - Adverse event [Unknown]
  - Dysphagia [Unknown]

NARRATIVE: CASE EVENT DATE: 201902
